FAERS Safety Report 5217152-6 (Version None)
Quarter: 2007Q1

REPORT INFORMATION
  Report Type: 
  Country: None (occurrence: None)
  Receive Date: 20070124
  Receipt Date: 20070123
  Transmission Date: 20070707
  Serious: Yes (Other)
  Sender: FDA-Public Use
  Company Number: 200710337EU

PATIENT
  Age: 46 Year
  Sex: Male

DRUGS (1)
  1. NICORETTE [Suspect]
     Route: 002
     Dates: start: 20051001

REACTIONS (2)
  - DEPENDENCE [None]
  - DRUG ABUSER [None]
